FAERS Safety Report 7911152-0 (Version None)
Quarter: 2011Q4

REPORT INFORMATION
  Report Type: 
  Country: None (occurrence: None)
  Receive Date: 20111114
  Receipt Date: 20111102
  Transmission Date: 20120403
  Serious: No
  Sender: FDA-Public Use
  Company Number: NL-JNJFOC-20111101393

PATIENT
  Sex: Female

DRUGS (4)
  1. DURAGESIC-100 [Suspect]
     Route: 062
  2. DURAGESIC-100 [Suspect]
     Route: 062
  3. ACETAMINOPHEN [Concomitant]
     Route: 065
  4. DURAGESIC-100 [Suspect]
     Indication: PAIN
     Route: 062

REACTIONS (9)
  - WRONG TECHNIQUE IN DRUG USAGE PROCESS [None]
  - HEADACHE [None]
  - PRURITUS [None]
  - CHILLS [None]
  - PYREXIA [None]
  - DRUG INEFFECTIVE [None]
  - DIARRHOEA [None]
  - WEIGHT DECREASED [None]
  - NAUSEA [None]
